FAERS Safety Report 9378497 (Version 3)
Quarter: 2013Q4

REPORT INFORMATION
  Report Type: Spontaneous
  Country: US (occurrence: US)
  Receive Date: 20130702
  Receipt Date: 20131018
  Transmission Date: 20140711
  Serious: Yes (Other)
  Sender: FDA-Public Use
  Company Number: US-AMGEN-USASP2013045888

PATIENT
  Age: 75 Year
  Sex: Female
  Weight: 99.77 kg

DRUGS (1)
  1. PROCRIT [Suspect]
     Indication: ANAEMIA
     Dosage: 10000 UNIT/ML, QWK
     Route: 058

REACTIONS (7)
  - Lethargy [Not Recovered/Not Resolved]
  - Laboratory test abnormal [Not Recovered/Not Resolved]
  - Malaise [Not Recovered/Not Resolved]
  - Expired drug administered [Recovered/Resolved]
  - Cystitis [Not Recovered/Not Resolved]
  - Nervousness [Not Recovered/Not Resolved]
  - Anaemia [Not Recovered/Not Resolved]
